FAERS Safety Report 13085937 (Version 4)
Quarter: 2017Q1

REPORT INFORMATION
  Report Type: Report from Study
  Country: JP (occurrence: JP)
  Receive Date: 20170104
  Receipt Date: 20170329
  Transmission Date: 20170428
  Serious: Yes (Death, Other)
  Sender: FDA-Public Use
  Company Number: JP-INCYTE CORPORATION-2016IN008291

PATIENT
  Age: 73 Year
  Sex: Male
  Weight: 49.1 kg

DRUGS (2)
  1. JAKAVI [Suspect]
     Active Substance: RUXOLITINIB
     Indication: PRIMARY MYELOFIBROSIS
     Dosage: 5 MG, QD
     Route: 048
     Dates: start: 20160321, end: 20160713
  2. RED BLOOD CELLS [Concomitant]
     Active Substance: HUMAN RED BLOOD CELL
     Indication: PRIMARY MYELOFIBROSIS
     Dosage: 2 IU, UNK
     Route: 065
     Dates: end: 20160801

REACTIONS (7)
  - Dehydration [Unknown]
  - Haemorrhage [Recovering/Resolving]
  - Haemoglobin decreased [Unknown]
  - Primary myelofibrosis [Unknown]
  - Tumour associated fever [Unknown]
  - Drug hypersensitivity [Recovered/Resolved]
  - Renal impairment [Fatal]

NARRATIVE: CASE EVENT DATE: 20160706
